FAERS Safety Report 9803119 (Version 1)
Quarter: 2014Q1

REPORT INFORMATION
  Report Type: Spontaneous
  Country: US (occurrence: None)
  Receive Date: 20140107
  Receipt Date: 20140107
  Transmission Date: 20141002
  Serious: Yes (Life-Threatening, Hospitalization)
  Sender: FDA-Public Use
  Company Number: None

PATIENT
  Age: 40 Year
  Sex: Female
  Weight: 77.11 kg

DRUGS (1)
  1. SAVELLA [Suspect]
     Indication: FIBROMYALGIA
     Route: 048
     Dates: start: 20120901, end: 20130904

REACTIONS (5)
  - Loss of consciousness [None]
  - Blood glucose decreased [None]
  - Heart rate decreased [None]
  - Respiratory rate decreased [None]
  - Pancreatic disorder [None]
